FAERS Safety Report 10203740 (Version 1)
Quarter: 2014Q2

REPORT INFORMATION
  Report Type: Spontaneous
  Country: US (occurrence: None)
  Receive Date: 20140523
  Receipt Date: 20140523
  Transmission Date: 20141212
  Serious: Yes (Other)
  Sender: FDA-Public Use
  Company Number: 2014P1004178

PATIENT
  Age: 17 Year
  Sex: Male

DRUGS (4)
  1. MYORISAN [Suspect]
     Indication: ACNE
     Route: 048
     Dates: start: 20140327, end: 20140414
  2. LEXAPRO [Concomitant]
  3. SINGULAIR [Concomitant]
  4. TRAZODONE [Concomitant]

REACTIONS (1)
  - Depression [None]
